FAERS Safety Report 10753108 (Version 1)
Quarter: 2015Q1

REPORT INFORMATION
  Report Type: Spontaneous
  Country: US (occurrence: US)
  Receive Date: 20150130
  Receipt Date: 20150130
  Transmission Date: 20150721
  Serious: No
  Sender: FDA-Public Use
  Company Number: US-PFIZER INC-2015032471

PATIENT
  Age: 20 Year
  Sex: Female
  Weight: 49 kg

DRUGS (4)
  1. AZITHROMYCIN [Suspect]
     Active Substance: AZITHROMYCIN ANHYDROUS
     Indication: BACTERIAL RHINITIS
     Dosage: UNK
     Dates: start: 20141218, end: 20141223
  2. LEVOTHYROXINE [Concomitant]
     Active Substance: LEVOTHYROXINE
     Indication: HYPOTHYROIDISM
     Dosage: 0.075 ?G, 1X/DAY
     Route: 048
  3. HUMALOG [Concomitant]
     Active Substance: INSULIN LISPRO
     Indication: TYPE 1 DIABETES MELLITUS
     Dosage: 1/10 RATIO
  4. LANTUS [Concomitant]
     Active Substance: INSULIN GLARGINE
     Indication: TYPE 1 DIABETES MELLITUS
     Dosage: 32 UNITS, DAILY

REACTIONS (19)
  - Decreased appetite [Recovering/Resolving]
  - Flatulence [Recovering/Resolving]
  - Restlessness [Recovering/Resolving]
  - Pain [Not Recovered/Not Resolved]
  - Pain [Recovering/Resolving]
  - Arthralgia [Recovering/Resolving]
  - Insomnia [Recovering/Resolving]
  - Quality of life decreased [Recovering/Resolving]
  - Nasal congestion [Recovering/Resolving]
  - Abdominal pain [Recovering/Resolving]
  - Hyperhidrosis [Recovering/Resolving]
  - Myalgia [Recovering/Resolving]
  - Paranoia [Recovering/Resolving]
  - Mood swings [Recovering/Resolving]
  - Chest pain [Recovering/Resolving]
  - Lymphadenopathy [Recovering/Resolving]
  - Abdominal pain upper [Recovering/Resolving]
  - Chills [Recovering/Resolving]
  - Heart rate increased [Recovering/Resolving]

NARRATIVE: CASE EVENT DATE: 20141221
